FAERS Safety Report 8762478 (Version 1)
Quarter: 2012Q4

REPORT INFORMATION
  Report Type: 
  Country: DE (occurrence: DE)
  Receive Date: 20120830
  Receipt Date: 20120830
  Transmission Date: 20130627
  Serious: Yes (Hospitalization)
  Sender: FDA-Public Use
  Company Number: DE-PFIZER INC-2012208443

PATIENT
  Sex: Female
  Weight: 90 kg

DRUGS (5)
  1. GENOTROPIN [Suspect]
     Indication: HYPOPITUITARISM
     Dosage: 0.1 mg, 7-WK
     Route: 058
     Dates: start: 20080123
  2. L-THYROXIN [Concomitant]
     Indication: HYPOTHYROIDISM
     Dosage: UNK
     Dates: start: 20060815
  3. ESTRADIOL [Concomitant]
     Indication: HYPOGONADISM
     Dosage: UNK
     Dates: start: 20070415
  4. NORETHISTERON [Concomitant]
     Indication: HYPOGONADISM
     Dosage: UNK
     Dates: start: 20070415
  5. HYDROCORTISONE [Concomitant]
     Indication: ADRENAL INSUFFICIENCY
     Dosage: UNK
     Dates: start: 20060815

REACTIONS (1)
  - Surgery [Unknown]
